FAERS Safety Report 11293827 (Version 1)
Quarter: 2015Q3

REPORT INFORMATION
  Report Type: Spontaneous
  Country: US (occurrence: US)
  Receive Date: 20150722
  Receipt Date: 20150722
  Transmission Date: 20151125
  Serious: No
  Sender: FDA-Public Use
  Company Number: US-AMGEN-USASP2015057484

PATIENT

DRUGS (1)
  1. CORLANOR [Suspect]
     Active Substance: IVABRADINE HYDROCHLORIDE
     Indication: PRODUCT USED FOR UNKNOWN INDICATION
     Dosage: UNK
     Route: 065

REACTIONS (6)
  - Hypermobility syndrome [Unknown]
  - Asthenia [Unknown]
  - Post viral fatigue syndrome [Unknown]
  - Postural orthostatic tachycardia syndrome [Unknown]
  - Stress [Unknown]
  - Heart rate increased [Unknown]
